FAERS Safety Report 25368567 (Version 1)
Quarter: 2025Q2

REPORT INFORMATION
  Report Type: Spontaneous
  Country: CN (occurrence: CN)
  Receive Date: 20250528
  Receipt Date: 20250528
  Transmission Date: 20250716
  Serious: Yes (Hospitalization, Other)
  Sender: PFIZER
  Company Number: CN-PFIZER INC-PV202500062741

PATIENT
  Age: 32 Year
  Sex: Female
  Weight: 53 kg

DRUGS (5)
  1. LINEZOLID [Suspect]
     Active Substance: LINEZOLID
     Indication: Meningitis tuberculous
     Dosage: 0.6 G, 1X/DAY
     Route: 048
     Dates: start: 20250212, end: 20250220
  2. ISONIAZID [Suspect]
     Active Substance: ISONIAZID
     Indication: Meningitis tuberculous
     Dosage: 0.5 G, 1X/DAY
     Route: 048
     Dates: start: 20250212, end: 20250220
  3. RIFAMPIN [Suspect]
     Active Substance: RIFAMPIN
     Indication: Meningitis tuberculous
     Dosage: 0.6 G, 1X/DAY
     Route: 048
     Dates: start: 20250212, end: 20250220
  4. PYRAZINAMIDE [Suspect]
     Active Substance: PYRAZINAMIDE
     Indication: Meningitis tuberculous
     Dosage: 0.5 G, 3X/DAY
     Route: 048
     Dates: start: 20250212, end: 20250220
  5. MOXIFLOXACIN HYDROCHLORIDE [Suspect]
     Active Substance: MOXIFLOXACIN HYDROCHLORIDE
     Indication: Meningitis tuberculous
     Dosage: 0.4 G, 1X/DAY
     Route: 048
     Dates: start: 20250212, end: 20250220

REACTIONS (3)
  - Drug-induced liver injury [Recovering/Resolving]
  - Hepatic function abnormal [Recovering/Resolving]
  - Off label use [Unknown]

NARRATIVE: CASE EVENT DATE: 20250212
